FAERS Safety Report 8579637-4 (Version None)
Quarter: 2012Q3

REPORT INFORMATION
  Report Type: 
  Country: None (occurrence: None)
  Receive Date: 20120808
  Receipt Date: 20120731
  Transmission Date: 20120928
  Serious: Yes (Hospitalization)
  Sender: FDA-Public Use
  Company Number: PHHY2012FR065872

PATIENT
  Sex: Female

DRUGS (8)
  1. LOMEXIN [Concomitant]
     Indication: VULVOVAGINAL MYCOTIC INFECTION
  2. ESCITALOPRAM [Concomitant]
  3. BRONCHOKOD [Concomitant]
     Indication: BRONCHITIS
     Dosage: UNK
     Route: 048
     Dates: start: 20120620, end: 20120623
  4. PYOSTACINE [Concomitant]
     Indication: BRONCHITIS
     Route: 048
     Dates: start: 20120620, end: 20120623
  5. LEVONORGESTREL [Suspect]
     Indication: CONTRACEPTION
     Route: 048
     Dates: start: 20120101, end: 20120703
  6. OXAZEPAM [Concomitant]
  7. PREDNISOLONE [Concomitant]
     Indication: BRONCHITIS
  8. VESICARE [Concomitant]
     Indication: URINARY INCONTINENCE
     Route: 048
     Dates: start: 20120620, end: 20120623

REACTIONS (9)
  - GASTROOESOPHAGEAL REFLUX DISEASE [None]
  - PARAESTHESIA [None]
  - PYREXIA [None]
  - ORAL PAIN [None]
  - DYSPHONIA [None]
  - FACE OEDEMA [None]
  - ANGIOEDEMA [None]
  - FUNGAL INFECTION [None]
  - EYELID OEDEMA [None]
